FAERS Safety Report 5946829-X (Version None)
Quarter: 2008Q4

REPORT INFORMATION
  Report Type: 
  Country: None (occurrence: None)
  Receive Date: 20081110
  Receipt Date: 20081029
  Transmission Date: 20090506
  Serious: Yes (Death)
  Sender: FDA-Public Use
  Company Number: FR-JNJFOC-20081006655

PATIENT
  Sex: Male

DRUGS (5)
  1. RISPERDAL CONSTA [Suspect]
     Indication: SCHIZOPHRENIA
     Route: 030
  2. HALDOL [Suspect]
     Indication: SCHIZOPHRENIA
     Route: 048
  3. LOXAPINE HCL [Suspect]
     Indication: SCHIZOPHRENIA
     Route: 030
  4. NOZINAN [Suspect]
     Indication: SCHIZOPHRENIA
     Route: 048
  5. ABILIFY [Suspect]
     Indication: SCHIZOPHRENIA
     Route: 048

REACTIONS (3)
  - CARDIO-RESPIRATORY ARREST [None]
  - FAECALOMA [None]
  - INTESTINAL OBSTRUCTION [None]
